FAERS Safety Report 25284113 (Version 2)
Quarter: 2025Q2

REPORT INFORMATION
  Report Type: Spontaneous
  Country: AU (occurrence: AU)
  Receive Date: 20250508
  Receipt Date: 20250514
  Transmission Date: 20250717
  Serious: Yes (Other)
  Sender: SANDOZ
  Company Number: AU-PFIZER INC-PV202500024484

PATIENT

DRUGS (2)
  1. ACYCLOVIR [Suspect]
     Active Substance: ACYCLOVIR
     Indication: Herpes simplex
     Route: 042
  2. ACYCLOVIR [Suspect]
     Active Substance: ACYCLOVIR
     Indication: Herpes simplex
     Route: 042

REACTIONS (1)
  - Nephropathy toxic [Unknown]
